FAERS Safety Report 12675483 (Version 1)
Quarter: 2016Q3

REPORT INFORMATION
  Report Type: Spontaneous
  Country: AU (occurrence: AU)
  Receive Date: 20160823
  Receipt Date: 20160823
  Transmission Date: 20161109
  Serious: Yes (Hospitalization, Other)
  Sender: FDA-Public Use
  Company Number: AU-AMGEN-AUSSP2016107137

PATIENT
  Age: 84 Year
  Sex: Male

DRUGS (15)
  1. PROLIA [Suspect]
     Active Substance: DENOSUMAB
     Indication: OSTEOPOROSIS
     Dosage: 60 MG/ML, Q6MO
     Route: 065
     Dates: start: 20150216
  2. ASMOL [Concomitant]
     Active Substance: ALBUTEROL SULFATE
     Dosage: 100 MUG, Q4H
  3. FERRO F [Concomitant]
     Dosage: 310 MG, QD
  4. NORSPAN [Concomitant]
     Active Substance: BUPRENORPHINE
     Dosage: 5 MUG, QWK
  5. MAXOLON [Concomitant]
     Active Substance: METOCLOPRAMIDE HYDROCHLORIDE
     Dosage: 10 MG, TID
  6. PANTOPRAZOLE SODIUM. [Concomitant]
     Active Substance: PANTOPRAZOLE SODIUM
     Dosage: 40 MG, UNK
  7. TEMAZEPAM. [Concomitant]
     Active Substance: TEMAZEPAM
     Dosage: 10 MG, QHS
  8. SODIUM BICARBONATE. [Concomitant]
     Active Substance: SODIUM BICARBONATE
     Dosage: 178.5 MG, UNK
  9. SYSTANE (HYPROMELLOSE 2910 (4000 MPA.S)) [Concomitant]
     Active Substance: HYPROMELLOSE 2910 (4000 MPA.S)
  10. CHOLECALCIFEROL [Concomitant]
     Active Substance: CHOLECALCIFEROL
     Dosage: 1000 UNIT, UNK
  11. LANTUS [Concomitant]
     Active Substance: INSULIN GLARGINE
     Dosage: 100 UNIT, MIDDAY
  12. MACROGOL [Concomitant]
     Active Substance: POLYETHYLENE GLYCOLS
     Dosage: 13.125 G, QD
  13. ENDONE [Concomitant]
     Active Substance: OXYCODONE HYDROCHLORIDE
     Dosage: 5 MG, TID
  14. POTASSIUM CHLORIDE. [Concomitant]
     Active Substance: POTASSIUM CHLORIDE
     Dosage: 7 MG, UNK
  15. NOVORAPID [Concomitant]
     Active Substance: INSULIN ASPART
     Dosage: 100 UNIT, TID

REACTIONS (6)
  - Hyponatraemia [Unknown]
  - Alcoholic pancreatitis [Unknown]
  - Liver function test increased [Unknown]
  - Biliary dilatation [Unknown]
  - Bile duct obstruction [Unknown]
  - Device occlusion [Unknown]

NARRATIVE: CASE EVENT DATE: 20150319
